FAERS Safety Report 5108538-9 (Version None)
Quarter: 2006Q3

REPORT INFORMATION
  Report Type: 
  Country: None (occurrence: None)
  Receive Date: 20060913
  Receipt Date: 20060901
  Transmission Date: 20061208
  Serious: Yes (Hospitalization)
  Sender: FDA-Public Use
  Company Number: FRWYE620315MAY06

PATIENT
  Age: 46 Year
  Sex: Male

DRUGS (9)
  1. EFFEXOR XR [Suspect]
     Indication: DEPRESSION
     Dosage: 75 MG TOTAL DAILY
     Route: 048
     Dates: end: 20060129
  2. ALCOHOL (ETHANOL) [Suspect]
     Route: 048
     Dates: end: 20060119
  3. VALIUM [Suspect]
     Indication: ALCOHOLIC PSYCHOSIS
     Dosage: 5 MG 1X PER 1 DAY
     Route: 048
     Dates: start: 20060118, end: 20060128
  4. MEPRONIZINE (ACEPROMETAZINE/MEPROBAMATE) [Concomitant]
  5. EQUANIL [Concomitant]
  6. INEXIUM (ESOMEPRAZOLE) [Concomitant]
  7. BEVITINE (THIAMINE HYDROCHLORIDE) [Concomitant]
  8. REVIA [Concomitant]
  9. ASPIRIN [Concomitant]

REACTIONS (5)
  - ALCOHOL WITHDRAWAL SYNDROME [None]
  - CEREBRAL ATROPHY [None]
  - CONFUSIONAL STATE [None]
  - GRAND MAL CONVULSION [None]
  - POSTICTAL STATE [None]
